FAERS Safety Report 8329206-6 (Version None)
Quarter: 2012Q2

REPORT INFORMATION
  Report Type: 
  Country: None (occurrence: None)
  Receive Date: 20120502
  Receipt Date: 20120229
  Transmission Date: 20120825
  Serious: No
  Sender: FDA-Public Use
  Company Number: US-ASTRAZENECA-2012SE13885

PATIENT
  Sex: Female

DRUGS (4)
  1. HYDROCHLOROTHIAZIDE [Concomitant]
  2. OTHER VITAMINS [Concomitant]
  3. VITAMIN D [Concomitant]
  4. FASLODEX [Suspect]
     Indication: BREAST CANCER STAGE IV
     Route: 030
     Dates: start: 20110501

REACTIONS (9)
  - MALAISE [None]
  - ELECTROCARDIOGRAM ABNORMAL [None]
  - NASOPHARYNGITIS [None]
  - PALPITATIONS [None]
  - INFECTION [None]
  - DEPRESSED MOOD [None]
  - DYSPNOEA [None]
  - BURNING SENSATION [None]
  - NAUSEA [None]
